FAERS Safety Report 20462127 (Version 1)
Quarter: 2022Q1

REPORT INFORMATION
  Report Type: Spontaneous
  Country: None (occurrence: FR)
  Receive Date: 20220211
  Receipt Date: 20220211
  Transmission Date: 20220423
  Serious: Yes (Hospitalization)
  Sender: FDA-Public Use
  Company Number: FR-B.Braun Medical Inc.-2125803

PATIENT
  Age: 72 Year
  Sex: Female
  Weight: 43 kg

DRUGS (6)
  1. DEXTROSE [Suspect]
     Active Substance: DEXTROSE
  2. CARBOPLATIN [Suspect]
     Active Substance: CARBOPLATIN
  3. ETOPOSIDE [Suspect]
     Active Substance: ETOPOSIDE
  4. SODIUM CHLORIDE [Suspect]
     Active Substance: SODIUM CHLORIDE
  5. SOLU-MEDROL [Suspect]
     Active Substance: METHYLPREDNISOLONE SODIUM SUCCINATE
  6. ONDANSETRON [Concomitant]
     Active Substance: ONDANSETRON

REACTIONS (2)
  - Atrial fibrillation [Recovered/Resolved]
  - Acute pulmonary oedema [Recovered/Resolved]
